FAERS Safety Report 5283602-2 (Version None)
Quarter: 2007Q2

REPORT INFORMATION
  Report Type: 
  Country: None (occurrence: None)
  Receive Date: 20070402
  Receipt Date: 20070322
  Transmission Date: 20071010
  Serious: Yes (Death)
  Sender: FDA-Public Use
  Company Number: JP-ROCHE-489771

PATIENT
  Age: 20 Year
  Sex: Female

DRUGS (9)
  1. TAMIFLU [Suspect]
     Indication: INFLUENZA
     Route: 048
  2. SHIPKISANON [Suspect]
     Indication: DRUG USE FOR UNKNOWN INDICATION
     Route: 048
  3. THEO-SLOW [Suspect]
     Indication: DRUG USE FOR UNKNOWN INDICATION
     Route: 048
  4. L-CYSTEIN [Suspect]
     Indication: DRUG USE FOR UNKNOWN INDICATION
     Route: 048
  5. TAVEGYL [Suspect]
     Indication: DRUG USE FOR UNKNOWN INDICATION
     Dosage: DOSE FORM REPORTED AS ^ORAL FORMULATION (NOT OTHERWISE SPECIFIED)^.
     Route: 048
  6. IRSOGLADINE MALEATE [Suspect]
     Indication: DRUG USE FOR UNKNOWN INDICATION
     Dosage: DRUG REPORTED AS ^CEREGASRON (IRSOGLADINE MALEATE)^. DOSE FORM REPORTED AS ^ORAL FORMULATION (NOT O+
     Route: 048
  7. FAMOSTAGINE [Suspect]
     Indication: DRUG USE FOR UNKNOWN INDICATION
     Route: 065
  8. DIGESTIVE ENZYMES [Suspect]
     Indication: DRUG USE FOR UNKNOWN INDICATION
     Dosage: DRUG REPORTED AS ^YOULASE (DIGESTIVE ENZYME PREPARATIONS)^. FORM REPORTED AS ^ORAL FORMULATION (NOT+
     Route: 048
  9. LOXOPROFEN SODIUM [Suspect]
     Indication: DRUG USE FOR UNKNOWN INDICATION
     Dosage: DRUG REPORTED AS ^ROSEOL (LOXOPROFEN SODIUM)^. FORM REPORTED AS ^ORAL FORMULATION (NOT OTHERWISE SP+
     Route: 048

REACTIONS (1)
  - CARDIO-RESPIRATORY ARREST [None]
